FAERS Safety Report 9825044 (Version 1)
Quarter: 2014Q1

REPORT INFORMATION
  Report Type: Spontaneous
  Country: US (occurrence: None)
  Receive Date: 20140115
  Receipt Date: 20140115
  Transmission Date: 20141002
  Serious: No
  Sender: FDA-Public Use
  Company Number: None

PATIENT
  Age: 53 Year
  Sex: Male

DRUGS (1)
  1. STRIBILD [Suspect]
     Dosage: 1TAB
     Route: 048
     Dates: start: 20131001

REACTIONS (1)
  - Bronchitis [None]
